FAERS Safety Report 10234623 (Version 3)
Quarter: 2014Q2

REPORT INFORMATION
  Report Type: Report from Study
  Country: BR (occurrence: BR)
  Receive Date: 20140613
  Receipt Date: 20140619
  Transmission Date: 20141212
  Serious: No
  Sender: FDA-Public Use
  Company Number: BR-BIOGENIDEC-2013BI118985

PATIENT
  Age: 28 Year
  Sex: Female

DRUGS (4)
  1. AVONEX [Suspect]
     Indication: MULTIPLE SCLEROSIS
     Route: 030
     Dates: end: 201307
  2. AVONEX [Suspect]
     Indication: MULTIPLE SCLEROSIS
     Route: 030
     Dates: start: 20140502
  3. PROEPA GESTA (POLYUNSATURATED FAT ACID AND OMEGA 3) [Concomitant]
     Indication: PREGNANCY
  4. DAMATER [Concomitant]
     Indication: PREGNANCY

REACTIONS (1)
  - Dyspepsia [Unknown]
